FAERS Safety Report 10243675 (Version 1)
Quarter: 2014Q2

REPORT INFORMATION
  Report Type: Spontaneous
  Country: GB (occurrence: None)
  Receive Date: 20140616
  Receipt Date: 20140616
  Transmission Date: 20141212
  Serious: Yes (Other)
  Sender: FDA-Public Use
  Company Number: GB-DEXPHARM-20140325

PATIENT
  Age: 49 Year
  Sex: Female

DRUGS (2)
  1. ESOMEPRAZOLE [Suspect]
     Indication: GASTROOESOPHAGEAL REFLUX DISEASE
     Route: 048
     Dates: start: 20140402, end: 20140505
  2. OMEPRAZOLE [Suspect]
     Indication: GASTROOESOPHAGEAL REFLUX DISEASE
     Route: 048
     Dates: start: 20120303

REACTIONS (10)
  - Vision blurred [None]
  - Disturbance in attention [None]
  - Depression [None]
  - Dizziness [None]
  - Migraine [None]
  - Vertigo labyrinthine [None]
  - Anxiety [None]
  - Photophobia [None]
  - Impaired driving ability [None]
  - Impaired work ability [None]
